FAERS Safety Report 7717679-9 (Version None)
Quarter: 2011Q3

REPORT INFORMATION
  Report Type: 
  Country: None (occurrence: None)
  Receive Date: 20110830
  Receipt Date: 20110830
  Transmission Date: 20111222
  Serious: Yes (Life-Threatening)
  Sender: FDA-Public Use
  Company Number: None

PATIENT
  Age: 62 Year
  Sex: Male
  Weight: 89.811 kg

DRUGS (1)
  1. CRESTOR [Suspect]
     Indication: BLOOD CHOLESTEROL INCREASED
     Dosage: 10MG
     Route: 002
     Dates: start: 20080601, end: 20110630

REACTIONS (4)
  - FATIGUE [None]
  - QUALITY OF LIFE DECREASED [None]
  - FRUSTRATION [None]
  - ATRIAL FIBRILLATION [None]
